FAERS Safety Report 4577871-1 (Version None)
Quarter: 2005Q1

REPORT INFORMATION
  Report Type: 
  Country: None (occurrence: None)
  Receive Date: 20050209
  Receipt Date: 20050131
  Transmission Date: 20050727
  Serious: Yes (Other)
  Sender: FDA-Public Use
  Company Number: 2005009150

PATIENT
  Age: 22 Year
  Sex: Female

DRUGS (3)
  1. ALDACTONE [Suspect]
     Indication: ALOPECIA
     Dosage: 50 MG (50 MG, DAILY), ORAL
     Route: 048
     Dates: start: 20030101
  2. ALDACTONE [Suspect]
     Indication: ALOPECIA
     Dosage: 50 MG (50 MG, DAILY), ORAL
     Route: 048
     Dates: start: 20041201
  3. DIANE (CYPROTERONE ACETATE, ETHINYLESTRADIOL) [Concomitant]

REACTIONS (2)
  - DIZZINESS [None]
  - WEIGHT DECREASED [None]
